FAERS Safety Report 8354580-4 (Version None)
Quarter: 2012Q2

REPORT INFORMATION
  Report Type: 
  Country: None (occurrence: None)
  Receive Date: 20120511
  Receipt Date: 20120504
  Transmission Date: 20120825
  Serious: Yes (Other)
  Sender: FDA-Public Use
  Company Number: US-ASTRAZENECA-2010SE52988

PATIENT
  Age: 66 Year
  Sex: Female
  Weight: 88.5 kg

DRUGS (8)
  1. NORVASC [Suspect]
     Route: 065
  2. NEXIUM [Suspect]
     Route: 048
  3. SYNTHROID [Concomitant]
  4. CRESTOR [Suspect]
     Route: 048
  5. NORVASC [Suspect]
     Route: 065
  6. XANAX [Concomitant]
  7. CRESTOR [Suspect]
     Indication: BLOOD CHOLESTEROL INCREASED
     Route: 048
     Dates: start: 20101004, end: 20101102
  8. PLAVIX [Suspect]
     Route: 065

REACTIONS (8)
  - CEREBROVASCULAR ACCIDENT [None]
  - DYSPHEMIA [None]
  - MYALGIA [None]
  - INTENTIONAL DRUG MISUSE [None]
  - PAIN IN EXTREMITY [None]
  - TINNITUS [None]
  - MUSCLE SPASMS [None]
  - MUSCULAR WEAKNESS [None]
